FAERS Safety Report 14604984 (Version 1)
Quarter: 2018Q1

REPORT INFORMATION
  Report Type: Spontaneous
  Country: US (occurrence: US)
  Receive Date: 20180306
  Receipt Date: 20180306
  Transmission Date: 20180509
  Serious: Yes (Death)
  Sender: FDA-Public Use
  Company Number: None

PATIENT
  Age: 36 Year
  Sex: Female
  Weight: 100 kg

DRUGS (1)
  1. ISOVUE [Suspect]
     Active Substance: IOPAMIDOL
     Indication: ACUTE ABDOMEN
     Dosage: ?          OTHER FREQUENCY:ONCE;?
     Route: 040
     Dates: start: 20180227, end: 20180227

REACTIONS (4)
  - Dyspnoea [None]
  - Cardio-respiratory arrest [None]
  - Apnoea [None]
  - Pulse absent [None]

NARRATIVE: CASE EVENT DATE: 20180227
